APPROVED DRUG PRODUCT: OXALIPLATIN
Active Ingredient: OXALIPLATIN
Strength: 50MG/VIAL
Dosage Form/Route: INJECTABLE;INTRAVENOUS
Application: A090849 | Product #001
Applicant: SANDOZ INC
Approved: Apr 28, 2011 | RLD: No | RS: No | Type: DISCN